FAERS Safety Report 19409089 (Version 4)
Quarter: 2021Q4

REPORT INFORMATION
  Report Type: Spontaneous
  Country: JP (occurrence: JP)
  Receive Date: 20210613
  Receipt Date: 20211222
  Transmission Date: 20220304
  Serious: Yes (Life-Threatening, Hospitalization, Other)
  Sender: FDA-Public Use
  Company Number: JP-ONO-2021JP013816

PATIENT
  Age: 58 Year
  Sex: Male
  Weight: 102.5 kg

DRUGS (19)
  1. IVABRADINE HYDROCHLORIDE [Suspect]
     Active Substance: IVABRADINE HYDROCHLORIDE
     Indication: Cardiac failure chronic
     Dosage: UNK
     Route: 048
  2. PARSABIV [Suspect]
     Active Substance: ETELCALCETIDE HYDROCHLORIDE
     Indication: Hyperparathyroidism secondary
     Dosage: 5 MICORGRAM, Q56H
     Route: 010
     Dates: start: 20190907, end: 20200310
  3. PARSABIV [Suspect]
     Active Substance: ETELCALCETIDE HYDROCHLORIDE
     Dosage: 2.5 MICROGRAM, Q56H
     Route: 010
     Dates: start: 20200319, end: 20200407
  4. PARSABIV [Suspect]
     Active Substance: ETELCALCETIDE HYDROCHLORIDE
     Dosage: 5 MG, QW
     Route: 010
     Dates: start: 20200409, end: 20200512
  5. PARSABIV [Suspect]
     Active Substance: ETELCALCETIDE HYDROCHLORIDE
     Dosage: 2.5 MG, Q84H
     Route: 010
     Dates: start: 20200409, end: 20200512
  6. PARSABIV [Suspect]
     Active Substance: ETELCALCETIDE HYDROCHLORIDE
     Dosage: 2.5 MG, QW
     Route: 010
     Dates: start: 20200514
  7. PARSABIV [Suspect]
     Active Substance: ETELCALCETIDE HYDROCHLORIDE
     Dosage: 2.5 MG, QW
     Route: 010
     Dates: start: 20200514
  8. ROCALTROL [Concomitant]
     Active Substance: CALCITRIOL
     Dosage: 0.5 MUG, Q84H
     Route: 065
     Dates: start: 20190411, end: 20200310
  9. ROCALTROL [Concomitant]
     Active Substance: CALCITRIOL
     Dosage: 1.0 MUG, QW
     Route: 065
     Dates: start: 20190413, end: 20200307
  10. ROCALTROL [Concomitant]
     Active Substance: CALCITRIOL
     Dosage: 1.0 MUG, Q84H
     Route: 065
     Dates: start: 20200312
  11. ROCALTROL [Concomitant]
     Active Substance: CALCITRIOL
     Dosage: 0.5 MUG, QW
     Route: 065
     Dates: start: 20200317
  12. BIXALOMER [Concomitant]
     Active Substance: BIXALOMER
     Dosage: 4500 MG, EVERYDAY, STOP DATE:06/09/2019
     Route: 065
     Dates: end: 20190906
  13. BIXALOMER [Concomitant]
     Active Substance: BIXALOMER
     Dosage: 6000 MG, EVERYDAY
     Route: 065
     Dates: start: 20190907, end: 20190920
  14. BIXALOMER [Concomitant]
     Active Substance: BIXALOMER
     Dosage: 7500 MG, EVERYDAY
     Route: 065
     Dates: start: 20190921
  15. FOSRENOL [Concomitant]
     Active Substance: LANTHANUM CARBONATE
     Dosage: 2250 MG, EVERYDAY, STOP DATE 10/04/2020
     Route: 048
  16. FOSRENOL [Concomitant]
     Active Substance: LANTHANUM CARBONATE
     Dosage: 1250 MG, EVERYDAY
     Route: 048
     Dates: start: 20200411
  17. CALTAN [Concomitant]
     Active Substance: CALCIUM CARBONATE
     Dosage: 2000 MG, EVERYDAY, STOP DATE20/09/2019
     Route: 048
  18. CALTAN [Concomitant]
     Active Substance: CALCIUM CARBONATE
     Dosage: 3000 MG, EVERYDAY
     Route: 048
     Dates: start: 20190921, end: 20200410
  19. CALTAN [Concomitant]
     Active Substance: CALCIUM CARBONATE
     Dosage: 1500 MG, EVERYDAY
     Route: 048
     Dates: start: 20200411

REACTIONS (3)
  - Cardiac failure congestive [Recovering/Resolving]
  - Cellulitis [Recovering/Resolving]
  - Cellulitis [Recovering/Resolving]

NARRATIVE: CASE EVENT DATE: 20210402
